FAERS Safety Report 5908952-5 (Version None)
Quarter: 2008Q4

REPORT INFORMATION
  Report Type: 
  Country: None (occurrence: None)
  Receive Date: 20081001
  Receipt Date: 20080916
  Transmission Date: 20090506
  Serious: Yes (Other)
  Sender: FDA-Public Use
  Company Number: GXKR2008US08872

PATIENT
  Sex: Male

DRUGS (1)
  1. TRIAMCINOLONE ACETONIDE (NGX) [Suspect]
     Indication: PYODERMA GANGRENOSUM
     Dosage: 40 MG/ML, INJECTION NOS

REACTIONS (3)
  - PUPILLARY DISORDER [None]
  - RETINAL ARTERY OCCLUSION [None]
  - VISUAL ACUITY REDUCED [None]
